FAERS Safety Report 15297900 (Version 1)
Quarter: 2018Q3

REPORT INFORMATION
  Report Type: Spontaneous
  Country: US (occurrence: US)
  Receive Date: 20180820
  Receipt Date: 20180820
  Transmission Date: 20181010
  Serious: Yes (Other)
  Sender: FDA-Public Use
  Company Number: US-PFIZER INC-2018321002

PATIENT
  Age: 28 Year
  Sex: Male

DRUGS (9)
  1. ATGAM [Suspect]
     Active Substance: EQUINE THYMOCYTE IMMUNE GLOBULIN
     Indication: KIDNEY TRANSPLANT REJECTION
     Dosage: 750 MG, DAILY (12 MG/KG)
     Route: 042
     Dates: start: 1982
  2. METHYLPREDNISOLONE. [Concomitant]
     Active Substance: METHYLPREDNISOLONE
     Dosage: 32 MG, DAILY (MAINTAINED AT 32 MG DAILY)
     Dates: start: 1982
  3. AZATHIOPRINE. [Concomitant]
     Active Substance: AZATHIOPRINE
     Dosage: 50 MG, UNK
     Dates: start: 1982
  4. AZATHIOPRINE. [Concomitant]
     Active Substance: AZATHIOPRINE
     Dosage: UNK, DAILY (ONE DOSE OF AZATHIOPRINE, VARYING BETWEEN 0 AND 125 MG DAILY)
     Dates: start: 1982
  5. METHYLPREDNISOLONE. [Concomitant]
     Active Substance: METHYLPREDNISOLONE
     Dosage: 44 MG, UNK
     Dates: start: 1982
  6. METHYLPREDNISOLONE. [Concomitant]
     Active Substance: METHYLPREDNISOLONE
     Dosage: 10 MG, UNK
     Dates: start: 198602
  7. AZATHIOPRINE. [Concomitant]
     Active Substance: AZATHIOPRINE
     Indication: IMMUNOSUPPRESSION
     Dosage: 150 MG, UNK
     Dates: start: 1982
  8. METHYLPREDNISOLONE. [Concomitant]
     Active Substance: METHYLPREDNISOLONE
     Indication: IMMUNOSUPPRESSION
     Dosage: 72 MG, UNK
     Dates: start: 1982
  9. AZATHIOPRINE. [Concomitant]
     Active Substance: AZATHIOPRINE
     Dosage: 100 MG, 1X/DAY
     Dates: start: 198602

REACTIONS (3)
  - Glomerulonephritis [Recovered/Resolved]
  - Acute kidney injury [Recovered/Resolved]
  - Serum sickness [Recovered/Resolved]

NARRATIVE: CASE EVENT DATE: 1982
